FAERS Safety Report 4520248-5 (Version None)
Quarter: 2004Q4

REPORT INFORMATION
  Report Type: 
  Country: None (occurrence: None)
  Receive Date: 20041025
  Receipt Date: 20040916
  Transmission Date: 20050328
  Serious: Yes (Hospitalization, Other)
  Sender: FDA-Public Use
  Company Number: USA040978594

PATIENT
  Age: 40 Year
  Sex: Male

DRUGS (6)
  1. SYMBYAX [Suspect]
     Indication: BIPOLAR I DISORDER
  2. PROZAC [Suspect]
  3. WELLBUTRIN [Concomitant]
  4. TOPAMAX [Concomitant]
  5. BUSPAR [Concomitant]
  6. DEPAKOTE [Concomitant]

REACTIONS (2)
  - FEELING ABNORMAL [None]
  - PANCREATITIS [None]
